FAERS Safety Report 15808873 (Version 7)
Quarter: 2019Q1

REPORT INFORMATION
  Report Type: Spontaneous
  Country: JP (occurrence: JP)
  Receive Date: 20190110
  Receipt Date: 20190308
  Transmission Date: 20190417
  Serious: Yes (Hospitalization, Other)
  Sender: FDA-Public Use
  Company Number: JP-009507513-1901JPN000424J

PATIENT
  Age: 63 Year
  Sex: Male

DRUGS (3)
  1. PEMETREXED DISODIUM [Suspect]
     Active Substance: PEMETREXED DISODIUM
     Indication: NON-SMALL CELL LUNG CANCER
     Dosage: 500 MILLIGRAM/SQ. METER, Q3W
     Route: 051
     Dates: start: 20181228
  2. KEYTRUDA [Suspect]
     Active Substance: PEMBROLIZUMAB
     Indication: NON-SMALL CELL LUNG CANCER
     Dosage: 200 MILLIGRAM, ONCE EVERY 3 WEEKS
     Route: 041
     Dates: start: 20181228
  3. CISPLATIN. [Suspect]
     Active Substance: CISPLATIN
     Indication: NON-SMALL CELL LUNG CANCER
     Dosage: 75 MILLIGRAM/SQ. METER, ONCE EVERY 3 WEEKS
     Route: 051
     Dates: start: 20181228

REACTIONS (3)
  - Renal impairment [Recovering/Resolving]
  - Pleural effusion [Unknown]
  - Urine output decreased [Unknown]

NARRATIVE: CASE EVENT DATE: 20190101
